FAERS Safety Report 14684348 (Version 4)
Quarter: 2018Q3

REPORT INFORMATION
  Report Type: Spontaneous
  Country: AU (occurrence: AU)
  Receive Date: 20180327
  Receipt Date: 20180803
  Transmission Date: 20181010
  Serious: Yes (Death, Other)
  Sender: FDA-Public Use
  Company Number: AU-BAYER-2018-058806

PATIENT
  Age: 78 Year
  Sex: Male

DRUGS (2)
  1. NEXAVAR [Suspect]
     Active Substance: SORAFENIB
     Indication: HEPATOCELLULAR CARCINOMA
     Dosage: DAILY DOSE OF AT LEAST 400 MG FOR AT LEAT 20 OF THE LAST 28 DAYS
     Dates: start: 20170508, end: 20180409
  2. STIVARGA [Suspect]
     Active Substance: REGORAFENIB
     Indication: HEPATOCELLULAR CARCINOMA

REACTIONS (3)
  - Hepatotoxicity [Fatal]
  - Hepatocellular carcinoma [None]
  - Liver function test increased [None]

NARRATIVE: CASE EVENT DATE: 201711
